FAERS Safety Report 5364829-8 (Version None)
Quarter: 2007Q2

REPORT INFORMATION
  Report Type: 
  Country: None (occurrence: None)
  Receive Date: 20070621
  Receipt Date: 20070618
  Transmission Date: 20071010
  Serious: Yes (Other)
  Sender: FDA-Public Use
  Company Number: PHBS2007DE10087

PATIENT
  Age: 72 Year
  Sex: Male

DRUGS (1)
  1. DICLOFENAC [Suspect]
     Route: 061

REACTIONS (6)
  - ACTINIC KERATOSIS [None]
  - ERYTHEMA [None]
  - INFLAMMATION [None]
  - OEDEMA [None]
  - SECRETION DISCHARGE [None]
  - SKIN EXFOLIATION [None]
